FAERS Safety Report 15898716 (Version 1)
Quarter: 2019Q1

REPORT INFORMATION
  Report Type: Spontaneous
  Country: CN (occurrence: CN)
  Receive Date: 20190201
  Receipt Date: 20190201
  Transmission Date: 20190417
  Serious: Yes (Other)
  Sender: FDA-Public Use
  Company Number: CN-ROCHE-2250529

PATIENT
  Age: 43 Year
  Sex: Male

DRUGS (5)
  1. OXALIPLATIN. [Concomitant]
     Active Substance: OXALIPLATIN
     Indication: GASTRIC CANCER
     Dosage: 100MG AT DAY 1 AND 130MG AT DAY 2
     Route: 065
     Dates: start: 20170823
  2. RALTITREXED [Concomitant]
     Active Substance: RALTITREXED
     Indication: GASTRIC CANCER
     Dosage: AT DAY 3
     Route: 065
     Dates: start: 20170908
  3. CAPECITABINE. [Suspect]
     Active Substance: CAPECITABINE
     Indication: GASTRIC CANCER
     Dosage: DAY 1 TO DAY 14
     Route: 065
     Dates: start: 20171231
  4. GIMERACIL/OTERACIL POTASSIUM/TEGAFUR [Concomitant]
     Active Substance: GIMERACIL\OTERACIL\TEGAFUR
     Indication: GASTRIC CANCER
     Dosage: AT DAY 1 TO DAY 14
     Route: 065
     Dates: start: 20170823
  5. OXALIPLATIN. [Concomitant]
     Active Substance: OXALIPLATIN
     Dosage: 100MG AT DAY 1 AND 120MG AT DAY 2
     Route: 065
     Dates: start: 20170908

REACTIONS (5)
  - Calculus prostatic [Unknown]
  - Pelvic fluid collection [Unknown]
  - Pleural effusion [Unknown]
  - Intestinal obstruction [Unknown]
  - Nephrolithiasis [Unknown]

NARRATIVE: CASE EVENT DATE: 201802
